FAERS Safety Report 9017247 (Version 1)
Quarter: 2013Q1

REPORT INFORMATION
  Report Type: Spontaneous
  Country: FR (occurrence: FR)
  Receive Date: 20130117
  Receipt Date: 20130117
  Transmission Date: 20140127
  Serious: Yes (Death, Hospitalization)
  Sender: FDA-Public Use
  Company Number: FR-PFIZER INC-2005086191

PATIENT
  Age: 45 Year
  Sex: Male

DRUGS (8)
  1. ZYVOXID [Suspect]
     Indication: ENDOCARDITIS
     Dosage: 600 MG, 2X/DAY
     Route: 042
     Dates: start: 20050408, end: 20050602
  2. EUPANTOL [Suspect]
     Indication: ILL-DEFINED DISORDER
     Route: 065
     Dates: start: 20050408, end: 20050602
  3. VANCOMYCIN HCL [Suspect]
     Indication: ILL-DEFINED DISORDER
     Dosage: 1 G DAILY
     Route: 042
     Dates: start: 20050408, end: 20050602
  4. AZACTAM [Suspect]
     Indication: ILL-DEFINED DISORDER
     Dosage: 2 G, 3X/DAY
     Route: 042
     Dates: start: 20050517, end: 20050526
  5. CANCIDAS [Concomitant]
     Dosage: UNK
     Dates: start: 20050326
  6. CANCIDAS [Concomitant]
     Dosage: UNK
     Route: 042
     Dates: start: 20050408, end: 20050413
  7. CANCIDAS [Concomitant]
     Dosage: UNK
     Dates: start: 20050502, end: 20050516
  8. CANCIDAS [Concomitant]
     Dosage: UNK
     Dates: start: 20050526

REACTIONS (2)
  - Lactic acidosis [Fatal]
  - Hepatic failure [Fatal]
